FAERS Safety Report 5606214-7 (Version None)
Quarter: 2008Q1

REPORT INFORMATION
  Report Type: 
  Country: None (occurrence: None)
  Receive Date: 20080129
  Receipt Date: 20070212
  Transmission Date: 20080703
  Serious: No
  Sender: FDA-Public Use
  Company Number: A0639324A

PATIENT
  Sex: Female

DRUGS (1)
  1. WELLBUTRIN [Suspect]
     Dosage: 300MG PER DAY
     Dates: end: 20070201

REACTIONS (3)
  - DIZZINESS [None]
  - HEADACHE [None]
  - NAUSEA [None]
